FAERS Safety Report 4899193-1 (Version None)
Quarter: 2006Q1

REPORT INFORMATION
  Report Type: 
  Country: None (occurrence: None)
  Receive Date: 20060106
  Receipt Date: 20050317
  Transmission Date: 20060701
  Serious: Yes (Other)
  Sender: FDA-Public Use
  Company Number: HQWYE408128MAR05

PATIENT
  Age: 26 Year
  Sex: Female
  Weight: 118.04 kg

DRUGS (1)
  1. PRIMATENE MIST [Suspect]
     Indication: ASTHMA
     Dosage: 1 PUFF, ONE TIME, INHALATION
     Dates: start: 20050317, end: 20050317

REACTIONS (1)
  - PARAESTHESIA [None]
